FAERS Safety Report 10028720 (Version 2)
Quarter: 2014Q2

REPORT INFORMATION
  Report Type: Spontaneous
  Country: GB (occurrence: GB)
  Receive Date: 20140321
  Receipt Date: 20140421
  Transmission Date: 20141212
  Serious: Yes (Other)
  Sender: FDA-Public Use
  Company Number: PHFR2014GB002273

PATIENT
  Sex: Male

DRUGS (3)
  1. CLOZARIL [Suspect]
     Indication: SCHIZOPHRENIA
     Dosage: 450 MG, UNK
     Route: 048
     Dates: start: 2009
  2. CLOZARIL [Suspect]
     Dosage: UNK
     Route: 048
     Dates: start: 20090811
  3. AMISULPRIDE [Concomitant]
     Dosage: 400 MG, UNK
     Route: 048

REACTIONS (2)
  - Psoriasis [Not Recovered/Not Resolved]
  - Convulsion [Unknown]
